FAERS Safety Report 4428372-2 (Version None)
Quarter: 2004Q3

REPORT INFORMATION
  Report Type: 
  Country: None (occurrence: None)
  Receive Date: 20040813
  Receipt Date: 20040728
  Transmission Date: 20050211
  Serious: Yes (Death)
  Sender: FDA-Public Use
  Company Number: 8603

PATIENT

DRUGS (1)
  1. METHOTREXATE [Suspect]

REACTIONS (4)
  - ANAPHYLACTIC SHOCK [None]
  - MUCOSAL INFLAMMATION [None]
  - PLEURAL EFFUSION [None]
  - RENAL IMPAIRMENT [None]
